FAERS Safety Report 7710834-3 (Version None)
Quarter: 2011Q3

REPORT INFORMATION
  Report Type: 
  Country: None (occurrence: None)
  Receive Date: 20110825
  Receipt Date: 20110819
  Transmission Date: 20111222
  Serious: Yes (Life-Threatening, Hospitalization)
  Sender: FDA-Public Use
  Company Number: ES-B.I. PHARMACEUTICALS,INC./RIDGEFIELD-2007-ES-00053ES

PATIENT
  Age: 47 Year
  Sex: Male

DRUGS (4)
  1. EPIVIR [Concomitant]
     Indication: HIV INFECTION
     Route: 048
     Dates: end: 20070306
  2. EMTRICITABINE/TENOFOVIR DISOPROXIL FUMARATE [Concomitant]
     Indication: HIV TEST POSITIVE
  3. ZIDOVUDINE [Concomitant]
     Indication: HIV INFECTION
     Dates: end: 20070306
  4. VIRAMUNE [Suspect]
     Indication: HIV INFECTION
     Dosage: 400 MG
     Route: 048
     Dates: start: 20070201, end: 20070306

REACTIONS (14)
  - AGRANULOCYTOSIS [None]
  - DISCOMFORT [None]
  - AFFECT LABILITY [None]
  - LEUKOPENIA [None]
  - ASTHENIA [None]
  - PYREXIA [None]
  - COUGH [None]
  - RASH MORBILLIFORM [None]
  - WEIGHT DECREASED [None]
  - THROMBOCYTOPENIA [None]
  - BLOOD BILIRUBIN INCREASED [None]
  - DECREASED APPETITE [None]
  - DRUG HYPERSENSITIVITY [None]
  - ALANINE AMINOTRANSFERASE INCREASED [None]
